FAERS Safety Report 24124180 (Version 1)
Quarter: 2024Q3

REPORT INFORMATION
  Report Type: Report from Study
  Country: FR (occurrence: FR)
  Receive Date: 20240723
  Receipt Date: 20240723
  Transmission Date: 20241016
  Serious: Yes (Hospitalization)
  Sender: INSMED
  Company Number: FR-INSMED, INC.-2023-01545-FR

PATIENT
  Sex: Female
  Weight: 42 kg

DRUGS (3)
  1. ARIKAYCE [Suspect]
     Active Substance: AMIKACIN
     Indication: Atypical mycobacterial infection
     Dosage: 590 MILLIGRAM, QD
     Route: 055
     Dates: start: 202303, end: 20240117
  2. ARIKAYCE [Suspect]
     Active Substance: AMIKACIN
     Indication: Cystic fibrosis
     Dosage: 590 MILLIGRAM, QD
     Route: 055
     Dates: start: 20240317
  3. CILASTATIN SODIUM\IMIPENEM [Concomitant]
     Active Substance: CILASTATIN SODIUM\IMIPENEM
     Indication: Product used for unknown indication
     Dosage: UNK, UNK
     Route: 065

REACTIONS (16)
  - Hospitalisation [Unknown]
  - Nasopharyngitis [Recovered/Resolved]
  - Dyspepsia [Not Recovered/Not Resolved]
  - Abdominal pain [Recovered/Resolved]
  - Decreased appetite [Recovered/Resolved]
  - Headache [Recovered/Resolved]
  - Productive cough [Not Recovered/Not Resolved]
  - Diarrhoea [Not Recovered/Not Resolved]
  - Cough [Not Recovered/Not Resolved]
  - Fatigue [Not Recovered/Not Resolved]
  - Illness [Not Recovered/Not Resolved]
  - General physical health deterioration [Unknown]
  - Off label use [Unknown]
  - Product dose omission issue [Unknown]
  - Therapy interrupted [Unknown]
  - Wrong device used [Unknown]

NARRATIVE: CASE EVENT DATE: 20230101
